FAERS Safety Report 6430820-3 (Version None)
Quarter: 2009Q4

REPORT INFORMATION
  Report Type: 
  Country: None (occurrence: None)
  Receive Date: 20091106
  Receipt Date: 20091029
  Transmission Date: 20100525
  Serious: Yes (Life-Threatening, Hospitalization)
  Sender: FDA-Public Use
  Company Number: JP-BAYER-200914153BYL

PATIENT
  Age: 81 Year
  Sex: Female
  Weight: 68 kg

DRUGS (7)
  1. NEXAVAR [Suspect]
     Indication: RENAL CELL CARCINOMA STAGE IV
     Dosage: TOTAL DAILY DOSE: 800 MG  UNIT DOSE: 200 MG
     Route: 048
     Dates: start: 20090618
  2. NORVASC [Concomitant]
     Route: 048
     Dates: start: 20090618
  3. CRESTOR [Concomitant]
     Route: 048
     Dates: start: 20090618
  4. RENIVACE [Concomitant]
     Route: 048
     Dates: start: 20090618
  5. MALFA [Concomitant]
     Indication: PROPHYLAXIS
     Route: 048
     Dates: start: 20090618
  6. ENTERONON-R [Concomitant]
     Indication: PROPHYLAXIS
     Route: 048
     Dates: start: 20090618
  7. LOXONIN [Concomitant]
     Indication: PAIN
     Route: 048
     Dates: start: 20091002

REACTIONS (5)
  - FASCIITIS [None]
  - HYPERKERATOSIS [None]
  - PALMAR-PLANTAR ERYTHRODYSAESTHESIA SYNDROME [None]
  - SEPSIS [None]
  - VULVAL CELLULITIS [None]
